FAERS Safety Report 5070932-2 (Version None)
Quarter: 2006Q3

REPORT INFORMATION
  Report Type: 
  Country: None (occurrence: None)
  Receive Date: 20060714
  Receipt Date: 20060424
  Transmission Date: 20061208
  Serious: No
  Sender: FDA-Public Use
  Company Number: 2006SP001806

PATIENT
  Age: 59 Year
  Sex: Female
  Weight: 95.2554 kg

DRUGS (5)
  1. LUNESTA [Suspect]
     Indication: INSOMNIA
     Dosage: 2 MG;HS;ORAL
     Route: 048
     Dates: start: 20060417
  2. CLONIDINE [Concomitant]
  3. CYMBALTA [Concomitant]
  4. ADVAIR DISKUS 100/50 [Concomitant]
  5. ASPIRIN [Concomitant]

REACTIONS (3)
  - DYSGEUSIA [None]
  - HANGOVER [None]
  - MIDDLE INSOMNIA [None]
